FAERS Safety Report 13871485 (Version 1)
Quarter: 2017Q3

REPORT INFORMATION
  Report Type: Spontaneous
  Country: US (occurrence: US)
  Receive Date: 20170816
  Receipt Date: 20170816
  Transmission Date: 20171127
  Serious: No
  Sender: FDA-Public Use
  Company Number: US-ALLERGAN-1677234US

PATIENT
  Age: 60 Year
  Sex: Male

DRUGS (2)
  1. CELEXA [Suspect]
     Active Substance: CITALOPRAM HYDROBROMIDE
     Indication: DEPRESSION
     Dosage: 20 MG, QD
     Route: 048
     Dates: start: 2015
  2. CELEXA [Suspect]
     Active Substance: CITALOPRAM HYDROBROMIDE
     Dosage: 20 MG, QD
     Route: 048
     Dates: start: 2013

REACTIONS (3)
  - Muscle tightness [Not Recovered/Not Resolved]
  - Muscle spasms [Not Recovered/Not Resolved]
  - Tension headache [Not Recovered/Not Resolved]

NARRATIVE: CASE EVENT DATE: 201611
